FAERS Safety Report 15560448 (Version 2)
Quarter: 2019Q2

REPORT INFORMATION
  Report Type: Spontaneous
  Country: ZA (occurrence: ZA)
  Receive Date: 20181029
  Receipt Date: 20190418
  Transmission Date: 20190711
  Serious: Yes (Death)
  Sender: FDA-Public Use
  Company Number: ZA-PFIZER INC-2018441173

PATIENT
  Age: 43 Year
  Sex: Male
  Weight: 48.98 kg

DRUGS (23)
  1. MEROPENEM. [Suspect]
     Active Substance: MEROPENEM
     Indication: PULMONARY TUBERCULOSIS
     Dosage: 1 G, 3X/DAY(TID)
     Route: 042
     Dates: start: 20171117
  2. CITALOPRAM [Concomitant]
     Active Substance: CITALOPRAM HYDROBROMIDE
     Dosage: UNK
  3. PHOLCODINE [Concomitant]
     Active Substance: PHOLCODINE
     Dosage: UNK
  4. TERIZIDONE [Suspect]
     Active Substance: TERIZIDONE
     Indication: PULMONARY TUBERCULOSIS
     Dosage: 750 MG, 1X/DAY (QD)
     Route: 048
     Dates: start: 20171102
  5. PYRAZINAMIDE. [Suspect]
     Active Substance: PYRAZINAMIDE
     Indication: PULMONARY TUBERCULOSIS
     Dosage: 1.5 MG, 1X/DAY; (QD)
     Route: 048
     Dates: start: 20171102
  6. AUGMENTIN [Suspect]
     Active Substance: AMOXICILLIN\CLAVULANATE POTASSIUM
     Indication: PULMONARY TUBERCULOSIS
     Dosage: 375 MG, 1X/DAY(QD)
     Route: 048
     Dates: start: 20171108
  7. MOXIFLOXACIN. [Suspect]
     Active Substance: MOXIFLOXACIN
     Indication: PULMONARY TUBERCULOSIS
     Dosage: 800 MG, 1X/DAY (QD)
     Route: 048
     Dates: start: 20171102
  8. TERIZIDONE [Suspect]
     Active Substance: TERIZIDONE
     Dosage: 750 UNK, UNK
     Dates: start: 20151019
  9. 3TC [Concomitant]
     Active Substance: LAMIVUDINE
     Dosage: UNK
     Dates: start: 20151116
  10. AMINOSALICYLIC ACID [Suspect]
     Active Substance: AMINOSALICYLIC ACID
     Indication: PULMONARY TUBERCULOSIS
     Dosage: 8 G, 1X/DAY (QD) (NOCTE)
     Route: 048
     Dates: start: 20171102
  11. AMINOSALICYLIC ACID [Suspect]
     Active Substance: AMINOSALICYLIC ACID
     Dosage: 4 UNK, 2X/DAY; (BID)
     Dates: start: 20151116, end: 2016
  12. CLOFAZIMINE [Suspect]
     Active Substance: CLOFAZIMINE
     Indication: PULMONARY TUBERCULOSIS
     Dosage: 100 MG, 1X/DAY(QD)
     Route: 048
     Dates: start: 20171102
  13. CLOFAZIMINE [Suspect]
     Active Substance: CLOFAZIMINE
     Dosage: 100 UNK, UNK
     Dates: start: 20151116
  14. NVP [Concomitant]
     Indication: ANTIRETROVIRAL THERAPY
     Dosage: UNK
  15. VITAMIN B6 [Concomitant]
     Active Substance: PYRIDOXINE HYDROCHLORIDE
     Dosage: UNK
     Dates: start: 20151019
  16. LINEZOLID. [Suspect]
     Active Substance: LINEZOLID
     Indication: TUBERCULOSIS
     Dosage: 600 MG, 1X/DAY(QD)
     Route: 048
     Dates: start: 20171102
  17. BEDAQUILINE [Suspect]
     Active Substance: BEDAQUILINE
     Indication: PULMONARY TUBERCULOSIS
     Dosage: 200 MG, UNK; (TIW)
     Route: 048
     Dates: start: 20171102
  18. BEDAQUILINE [Suspect]
     Active Substance: BEDAQUILINE
     Dosage: 200 MG, UNK; (TIW)
     Dates: start: 20151116, end: 201604
  19. DELAMANID [Suspect]
     Active Substance: DELAMANID
     Indication: PULMONARY TUBERCULOSIS
     Dosage: 100 MG, 2X/DAY; (BID)
     Route: 048
     Dates: start: 20171102
  20. MOXIFLOXACIN. [Suspect]
     Active Substance: MOXIFLOXACIN
     Dosage: 400 UNK, UNK
     Dates: start: 20151019
  21. EMTRICITABINE + TENOFOVIR DISOPROXIL FUMARATE [Concomitant]
     Active Substance: EMTRICITABINE\TENOFOVIR DISOPROXIL FUMARATE
     Dosage: UNK
  22. LINEZOLID. [Suspect]
     Active Substance: LINEZOLID
     Dosage: 600 UNK, UNK
     Dates: start: 20151116
  23. PYRAZINAMIDE. [Suspect]
     Active Substance: PYRAZINAMIDE
     Dosage: UNK
     Dates: start: 20151019

REACTIONS (4)
  - Blood sodium decreased [Unknown]
  - Red blood cell count decreased [Unknown]
  - Vascular injury [Fatal]
  - Haemoglobin decreased [Unknown]

NARRATIVE: CASE EVENT DATE: 20180905
